FAERS Safety Report 8901553 (Version 1)
Quarter: 2012Q4

REPORT INFORMATION
  Report Type: Report from Study
  Country: JP (occurrence: JP)
  Receive Date: 20121108
  Receipt Date: 20121108
  Transmission Date: 20130627
  Serious: Yes (Hospitalization, Other)
  Sender: FDA-Public Use
  Company Number: JP-VERTEX PHARMACEUTICAL INC.-AE-2012-011481

PATIENT
  Age: 68 Year
  Sex: Female

DRUGS (14)
  1. VX-950 [Suspect]
     Indication: CHRONIC HEPATITIS C
     Dosage: 1500 mg, qd
     Route: 048
     Dates: start: 20120426, end: 20120628
  2. PEGINTRON                          /01543001/ [Suspect]
     Indication: CHRONIC HEPATITIS C
     Dosage: 0.83 ?g/kg, qw
     Route: 058
     Dates: start: 20120426, end: 20120501
  3. PEGINTRON                          /01543001/ [Suspect]
     Dosage: 0.42 ?g/kg, qw
     Route: 058
     Dates: start: 20120502, end: 20120530
  4. PEGINTRON                          /01543001/ [Suspect]
     Dosage: 0.21 ?g/kg, qw
     Route: 058
     Dates: start: 20120530
  5. PEGINTRON                          /01543001/ [Suspect]
     Dosage: 0.08 ?g/kg, qw
     Route: 058
     Dates: start: 20120614, end: 20120622
  6. REBETOL [Concomitant]
     Dosage: 400 mg, qd
     Route: 048
     Dates: start: 20120426, end: 20120516
  7. REBETOL [Concomitant]
     Dosage: 200 mg, qd
     Route: 048
     Dates: start: 20120517, end: 20120628
  8. PARIET [Concomitant]
     Dosage: 30 mg, qd
     Route: 048
     Dates: start: 20120426
  9. PARIET [Concomitant]
     Dosage: 210 mg, qd
     Route: 048
     Dates: start: 20120426
  10. TALION                             /01587402/ [Concomitant]
     Dosage: 20 mg, qd
     Route: 048
     Dates: start: 20120426
  11. TALION                             /01587402/ [Concomitant]
     Dosage: UNK UNK, qd
     Route: 048
     Dates: start: 20120628
  12. PRIMPERAN [Concomitant]
     Dosage: UNK, prn
     Route: 048
     Dates: start: 20120426, end: 20120628
  13. ZYLORIC [Concomitant]
     Dosage: 300 mg, qd
     Route: 048
     Dates: start: 20120502, end: 20120628
  14. PROZYME [Concomitant]
     Dosage: 210 mg, qd
     Route: 048
     Dates: start: 20120426

REACTIONS (2)
  - Bone marrow failure [Recovered/Resolved]
  - Hyperuricaemia [None]
